FAERS Safety Report 8025394-X (Version None)
Quarter: 2012Q1

REPORT INFORMATION
  Report Type: 
  Country: None (occurrence: None)
  Receive Date: 20120105
  Receipt Date: 20120102
  Transmission Date: 20120608
  Serious: Yes (Life-Threatening, Hospitalization)
  Sender: FDA-Public Use
  Company Number: FR-EISAI INC-E2090-01757-SPO-FR

PATIENT
  Sex: Male

DRUGS (3)
  1. ZONEGRAN [Suspect]
     Route: 048
     Dates: start: 20110301, end: 20110908
  2. LAMICTAL [Concomitant]
     Dosage: 200 MG, UNKNOWN
     Route: 048
     Dates: start: 20000501
  3. KEPPRA [Concomitant]
     Dosage: 1000 MG, UNKNOWN
     Route: 048
     Dates: start: 20080601

REACTIONS (2)
  - URINARY TRACT INFECTION [None]
  - WEIGHT DECREASED [None]
